FAERS Safety Report 6786715-9 (Version None)
Quarter: 2010Q2

REPORT INFORMATION
  Report Type: 
  Country: None (occurrence: None)
  Receive Date: 20100623
  Receipt Date: 20100614
  Transmission Date: 20101027
  Serious: Yes (Other)
  Sender: FDA-Public Use
  Company Number: US-BAYER-200919023NA

PATIENT
  Age: 59 Year
  Sex: Female
  Weight: 122 kg

DRUGS (22)
  1. MAGNEVIST [Suspect]
     Indication: ANGIOGRAM
     Route: 042
     Dates: start: 20040403, end: 20040403
  2. MAGNEVIST [Suspect]
     Dates: start: 20030110, end: 20030110
  3. MAGNEVIST [Suspect]
     Dates: start: 20040506, end: 20040506
  4. MAGNEVIST [Suspect]
     Dates: start: 20050915, end: 20050915
  5. OMNISCAN [Suspect]
     Indication: DRUG USE FOR UNKNOWN INDICATION
  6. OPTIMARK [Suspect]
     Indication: DRUG USE FOR UNKNOWN INDICATION
  7. MULTIHANCE [Suspect]
     Indication: DRUG USE FOR UNKNOWN INDICATION
  8. PROHANCE [Suspect]
     Indication: DRUG USE FOR UNKNOWN INDICATION
  9. UNKNOWN CONTRAST [Suspect]
     Indication: COMPUTERISED TOMOGRAM ABDOMEN
     Dates: start: 20060502, end: 20060502
  10. COUMADIN [Concomitant]
  11. LISINOPRIL [Concomitant]
  12. METOPROLOL TARTRATE [Concomitant]
  13. NORVASC [Concomitant]
  14. PHOSLO [Concomitant]
  15. EPOGEN [Concomitant]
  16. CARTIA XT [Concomitant]
  17. ISOSORBIDE [Concomitant]
  18. FUROSEMIDE [Concomitant]
  19. ZAROXOLYN [Concomitant]
  20. CLONIDINE [Concomitant]
  21. INSULIN [Concomitant]
  22. GLYBURIDE [Concomitant]

REACTIONS (22)
  - ANHEDONIA [None]
  - EMOTIONAL DISTRESS [None]
  - EXTREMITY CONTRACTURE [None]
  - GAIT DISTURBANCE [None]
  - GENERAL PHYSICAL HEALTH DETERIORATION [None]
  - JOINT CONTRACTURE [None]
  - JOINT RANGE OF MOTION DECREASED [None]
  - MOBILITY DECREASED [None]
  - MUSCULOSKELETAL STIFFNESS [None]
  - MYOSCLEROSIS [None]
  - NEPHROGENIC SYSTEMIC FIBROSIS [None]
  - OEDEMA PERIPHERAL [None]
  - PAIN [None]
  - SCAR [None]
  - SCLERAL DISORDER [None]
  - SKIN DISCOLOURATION [None]
  - SKIN DISORDER [None]
  - SKIN FIBROSIS [None]
  - SKIN HYPERTROPHY [None]
  - SKIN INDURATION [None]
  - SKIN PLAQUE [None]
  - SKIN TIGHTNESS [None]
